FAERS Safety Report 19763021 (Version 1)
Quarter: 2021Q3

REPORT INFORMATION
  Report Type: Spontaneous
  Country: US (occurrence: US)
  Receive Date: 20210826
  Receipt Date: 20210826
  Transmission Date: 20211014
  Serious: Yes (Hospitalization)
  Sender: FDA-Public Use
  Company Number: None

PATIENT

DRUGS (2)
  1. DOXIL [Suspect]
     Active Substance: DOXORUBICIN HYDROCHLORIDE
  2. DOXORUBICIN HCL [Suspect]
     Active Substance: DOXORUBICIN HYDROCHLORIDE

REACTIONS (9)
  - Intercepted product administration error [None]
  - Transcription medication error [None]
  - Product dispensing error [None]
  - Wrong product administered [None]
  - Product barcode issue [None]
  - Product selection error [None]
  - Product supply issue [None]
  - Product lot number issue [None]
  - Product preparation error [None]
